FAERS Safety Report 10269620 (Version 2)
Quarter: 2014Q4

REPORT INFORMATION
  Report Type: Spontaneous
  Country: LK (occurrence: LK)
  Receive Date: 20140701
  Receipt Date: 20141022
  Transmission Date: 20150528
  Serious: Yes (Death, Other)
  Sender: FDA-Public Use
  Company Number: LK-RANBAXY-2014R1-82944

PATIENT
  Age: 25 Year
  Sex: Male

DRUGS (1)
  1. MORPHINE [Suspect]
     Active Substance: MORPHINE
     Indication: PRODUCT USED FOR UNKNOWN INDICATION
     Route: 065

REACTIONS (3)
  - Asphyxia [Fatal]
  - Depressed level of consciousness [Fatal]
  - Toxicity to various agents [Fatal]
